FAERS Safety Report 5697134-0 (Version None)
Quarter: 2008Q2

REPORT INFORMATION
  Report Type: 
  Country: None (occurrence: None)
  Receive Date: 20080408
  Receipt Date: 20080328
  Transmission Date: 20081010
  Serious: Yes (Death, Life-Threatening)
  Sender: FDA-Public Use
  Company Number: IT-ELI_LILLY_AND_COMPANY-IT200803006764

PATIENT
  Sex: Male

DRUGS (11)
  1. XIGRIS [Suspect]
     Indication: SEPTIC SHOCK
     Dosage: 0.024 MG/KG, AS NEEDED
     Route: 042
     Dates: start: 20080226, end: 20080228
  2. NORADRENALINE [Concomitant]
     Dosage: UNK, UNKNOWN
     Route: 065
  3. MIDAZOLAM HCL [Concomitant]
     Dosage: UNK, UNKNOWN
     Route: 065
  4. MORPHINE [Concomitant]
     Dosage: UNK, UNKNOWN
     Route: 065
  5. VANCOMYCIN HCL [Concomitant]
     Dosage: UNK, UNKNOWN
     Route: 065
  6. METRONIDAZOLE HCL [Concomitant]
     Dosage: UNK, UNKNOWN
     Route: 065
  7. MEROPENEM [Concomitant]
     Dosage: UNK, UNKNOWN
     Route: 065
  8. FLUCONAZOLE [Concomitant]
     Dosage: UNK, UNKNOWN
     Route: 065
  9. FUROSEMIDE [Concomitant]
     Dosage: UNK, UNKNOWN
     Route: 065
  10. ANTITHROMBIN III [Concomitant]
     Dosage: UNK, UNKNOWN
     Route: 065
  11. IMMUNE GLOBULIN INTRAVENOUS (HUMAN) [Concomitant]
     Dosage: UNK, UNKNOWN
     Route: 065

REACTIONS (2)
  - CEREBRAL HAEMORRHAGE [None]
  - THROMBOCYTOPENIA [None]
